FAERS Safety Report 20199507 (Version 1)
Quarter: 2021Q4

REPORT INFORMATION
  Report Type: Spontaneous
  Country: GB (occurrence: GB)
  Receive Date: 20211217
  Receipt Date: 20211217
  Transmission Date: 20220303
  Serious: Yes (Other)
  Sender: FDA-Public Use
  Company Number: None

PATIENT
  Age: 45 Year
  Sex: Female
  Weight: 63 kg

DRUGS (2)
  1. FAMOTIDINE [Suspect]
     Active Substance: FAMOTIDINE
     Indication: Gastrooesophageal reflux disease
     Dosage: 20 MILLIGRAM, QD
     Route: 048
     Dates: start: 202110
  2. FAMOTIDINE [Suspect]
     Active Substance: FAMOTIDINE
     Indication: Ill-defined disorder

REACTIONS (5)
  - Depression [Recovering/Resolving]
  - Decreased appetite [Recovering/Resolving]
  - Crying [Recovering/Resolving]
  - Insomnia [Recovering/Resolving]
  - Libido decreased [Recovering/Resolving]
